FAERS Safety Report 6881755-3 (Version None)
Quarter: 2010Q3

REPORT INFORMATION
  Report Type: 
  Country: None (occurrence: None)
  Receive Date: 20100729
  Receipt Date: 20100723
  Transmission Date: 20110219
  Serious: Yes (Other)
  Sender: FDA-Public Use
  Company Number: US-ASTRAZENECA-2009UW14355

PATIENT
  Age: 50 Year
  Sex: Male
  Weight: 106.6 kg

DRUGS (7)
  1. SEROQUEL [Suspect]
     Indication: POST-TRAUMATIC STRESS DISORDER
     Route: 048
     Dates: start: 20010101
  2. SEROQUEL [Suspect]
     Indication: DEPRESSION
     Route: 048
     Dates: start: 20010101
  3. SEROQUEL [Suspect]
     Route: 048
     Dates: start: 20081015
  4. SEROQUEL [Suspect]
     Route: 048
     Dates: start: 20081015
  5. RISPERDAL [Concomitant]
     Indication: POST-TRAUMATIC STRESS DISORDER
     Dates: start: 20010101
  6. RISPERDAL [Concomitant]
     Indication: DEPRESSION
     Dates: start: 20010101
  7. EFFEXOR [Concomitant]
     Dates: start: 20081015

REACTIONS (2)
  - DIABETIC RETINOPATHY [None]
  - TYPE 2 DIABETES MELLITUS [None]
